FAERS Safety Report 7398804-9 (Version None)
Quarter: 2011Q2

REPORT INFORMATION
  Report Type: 
  Country: None (occurrence: None)
  Receive Date: 20110404
  Receipt Date: 20110404
  Transmission Date: 20111010
  Serious: No
  Sender: FDA-Public Use
  Company Number: None

PATIENT
  Sex: Male

DRUGS (1)
  1. AFINITOR [Suspect]
     Dosage: 10 MG PO TAKE ONE TABLET BY MOUTH EVERY DAY
     Route: 048
     Dates: start: 20110226

REACTIONS (8)
  - TOXICITY TO VARIOUS AGENTS [None]
  - FATIGUE [None]
  - TONGUE ULCERATION [None]
  - PANCREATIC ENZYMES INCREASED [None]
  - HAEMORRHAGIC DIATHESIS [None]
  - EPISTAXIS [None]
  - MALAISE [None]
  - IMPAIRED HEALING [None]
